FAERS Safety Report 9331107 (Version 1)
Quarter: 2013Q2

REPORT INFORMATION
  Report Type: Spontaneous
  Country: US (occurrence: US)
  Receive Date: 20130605
  Receipt Date: 20130605
  Transmission Date: 20140414
  Serious: No
  Sender: FDA-Public Use
  Company Number: US-BAYER-2013-068795

PATIENT
  Age: 57 Year
  Sex: Female
  Weight: 88.44 kg

DRUGS (6)
  1. ALEVE CAPLET [Suspect]
     Dosage: 1 DF, BID
     Route: 048
  2. CORTIZONE [Concomitant]
  3. GABAPENTIN [Concomitant]
  4. BISOPROLOL [Concomitant]
  5. PRAVASTATIN SODIUM [Concomitant]
  6. BAYER ASPIRIN REGIMEN ADULT LOW STRENGTH [Concomitant]

REACTIONS (1)
  - Incorrect drug administration duration [None]
